FAERS Safety Report 25277887 (Version 1)
Quarter: 2025Q2

REPORT INFORMATION
  Report Type: Spontaneous
  Country: US (occurrence: US)
  Receive Date: 20250507
  Receipt Date: 20250507
  Transmission Date: 20250717
  Serious: Yes (Other)
  Sender: BAYER HEALTHCARE PHARMACEUTICALS INC.
  Company Number: US-BAYER-2025A060021

PATIENT
  Sex: Female

DRUGS (1)
  1. MIRENA [Suspect]
     Active Substance: LEVONORGESTREL
     Indication: Intrauterine contraception
     Dosage: 20?G/DAY
     Route: 015
     Dates: start: 202001

REACTIONS (2)
  - Pregnancy with contraceptive device [Unknown]
  - Drug ineffective [None]

NARRATIVE: CASE EVENT DATE: 20240101
